FAERS Safety Report 24002820 (Version 2)
Quarter: 2024Q4

REPORT INFORMATION
  Report Type: Report from Study
  Country: US (occurrence: US)
  Receive Date: 20240624
  Receipt Date: 20241017
  Transmission Date: 20250115
  Serious: Yes (Hospitalization, Other)
  Sender: ABBVIE
  Company Number: US-ABBVIE-5643914

PATIENT
  Age: 55 Year
  Sex: Female

DRUGS (11)
  1. RINVOQ [Suspect]
     Active Substance: UPADACITINIB
     Indication: Rheumatoid arthritis
     Dosage: FORM STRENGTH: 15 MILLIGRAM
     Route: 048
     Dates: start: 202212, end: 202212
  2. RINVOQ [Suspect]
     Active Substance: UPADACITINIB
     Indication: Rheumatoid arthritis
     Dosage: TAKE 1 TABLET BY MOUTH ONCE DAILY (HOLD FOR FEVERS OR ANY INFECTION)?FORM STRENGTH: 15 MILLIGRAM
     Route: 048
  3. Evening Primrose Oil + Cranberry [Concomitant]
     Indication: Product used for unknown indication
  4. VITAMIN B12 [Concomitant]
     Active Substance: CYANOCOBALAMIN
     Indication: Product used for unknown indication
  5. VITAMIN C [Concomitant]
     Active Substance: ASCORBIC ACID
     Indication: Product used for unknown indication
  6. VITAMIN D3 [Concomitant]
     Active Substance: CHOLECALCIFEROL
     Indication: Product used for unknown indication
  7. DIETARY SUPPLEMENT\HERBALS\MILK THISTLE [Concomitant]
     Active Substance: MILK THISTLE
     Indication: Product used for unknown indication
     Route: 065
  8. OMEGA 3 [Concomitant]
     Active Substance: CAPSAICIN
     Indication: Product used for unknown indication
  9. BROMELAINS [Concomitant]
     Active Substance: BROMELAINS
     Indication: Product used for unknown indication
  10. NAC [Concomitant]
     Indication: Product used for unknown indication
     Dosage: 600
  11. NITROFURANTOIN [Suspect]
     Active Substance: NITROFURANTOIN
     Indication: Urinary tract infection
     Dosage: MONO?TOOK FOUR TABLETS
     Route: 065
     Dates: start: 2024, end: 2024

REACTIONS (19)
  - Palpitations [Unknown]
  - Chest pain [Unknown]
  - Urinary tract infection [Recovered/Resolved]
  - Abdominal distension [Unknown]
  - Hepatic enzyme increased [Not Recovered/Not Resolved]
  - Infection [Unknown]
  - Bladder discomfort [Unknown]
  - Respiratory tract infection [Unknown]
  - Urticaria [Unknown]
  - Vision blurred [Unknown]
  - Urinary tract infection [Unknown]
  - Abdominal discomfort [Unknown]
  - Surgery [Unknown]
  - Stomatitis [Unknown]
  - Blister [Unknown]
  - Arthropathy [Unknown]
  - Hospitalisation [Unknown]
  - Pain [Unknown]
  - Upper respiratory tract infection [Unknown]

NARRATIVE: CASE EVENT DATE: 20230801
